FAERS Safety Report 21504969 (Version 1)
Quarter: 2022Q4

REPORT INFORMATION
  Report Type: Spontaneous
  Country: US (occurrence: US)
  Receive Date: 20221025
  Receipt Date: 20221025
  Transmission Date: 20230112
  Serious: No
  Sender: FDA-Public Use
  Company Number: US-BoehringerIngelheim-2022-BI-199337

PATIENT

DRUGS (2)
  1. TRADJENTA [Suspect]
     Active Substance: LINAGLIPTIN
     Indication: Product used for unknown indication
  2. TRULICITY [Concomitant]
     Active Substance: DULAGLUTIDE
     Indication: Product used for unknown indication

REACTIONS (1)
  - Nausea [Unknown]
